FAERS Safety Report 9507162 (Version 1)
Quarter: 2013Q3

REPORT INFORMATION
  Report Type: Spontaneous
  Country: FR (occurrence: None)
  Receive Date: 20130904
  Receipt Date: 20130904
  Transmission Date: 20140515
  Serious: Yes (Death, Other)
  Sender: FDA-Public Use
  Company Number: SYM-2013-10231

PATIENT
  Age: 65 Year
  Sex: Male

DRUGS (3)
  1. TARGRETIN [Suspect]
     Indication: MYCOSIS FUNGOIDES
     Route: 048
     Dates: start: 200911
  2. APREPITANT [Suspect]
     Indication: PRURITUS
     Dates: start: 201109
  3. INTERFERON ALFA-2A (INTERFERON ALFA-2A) (INTERFER-ON ALFA-2A) [Concomitant]

REACTIONS (8)
  - Asthenia [None]
  - Aphagia [None]
  - Decreased appetite [None]
  - Dehydration [None]
  - Hypernatraemia [None]
  - Renal failure acute [None]
  - Drug interaction [None]
  - Weight decreased [None]
